APPROVED DRUG PRODUCT: COMBIVENT RESPIMAT
Active Ingredient: ALBUTEROL SULFATE; IPRATROPIUM BROMIDE
Strength: EQ 0.1MG BASE/INH;0.02MG/INH
Dosage Form/Route: SPRAY, METERED;INHALATION
Application: N021747 | Product #001
Applicant: BOEHRINGER INGELHEIM PHARMACEUTICALS INC
Approved: Oct 7, 2011 | RLD: Yes | RS: Yes | Type: RX

PATENTS:
Patent 7396341 | Expires: Oct 10, 2026
Patent 7837235 | Expires: Mar 13, 2028
Patent 8733341 | Expires: Oct 16, 2030
Patent 9027967 | Expires: Mar 31, 2027